FAERS Safety Report 5164745-0 (Version None)
Quarter: 2006Q4

REPORT INFORMATION
  Report Type: 
  Country: None (occurrence: None)
  Receive Date: 20061205
  Receipt Date: 20021205
  Transmission Date: 20070319
  Serious: Yes (Hospitalization)
  Sender: FDA-Public Use
  Company Number: FR-GLAXOSMITHKLINE-B0287288A

PATIENT
  Sex: Female
  Weight: 3.2 kg

DRUGS (5)
  1. RETROVIR [Suspect]
     Indication: ANTIVIRAL PROPHYLAXIS
     Route: 048
     Dates: start: 19970507
  2. EPIVIR [Suspect]
     Indication: ANTIVIRAL PROPHYLAXIS
     Dosage: 6MG TWICE PER DAY
     Route: 048
     Dates: start: 19970507
  3. RETROVIR [Suspect]
     Indication: HIV INFECTION
     Dates: start: 19940101
  4. EPIVIR [Suspect]
     Indication: HIV INFECTION
     Dosage: 150MG TWICE PER DAY
     Dates: start: 19970326
  5. RETROVIR [Suspect]
     Dates: start: 19970507, end: 19970507

REACTIONS (4)
  - BLOOD CREATINE PHOSPHOKINASE INCREASED [None]
  - DRUG EXPOSURE DURING PREGNANCY [None]
  - HYPERKALAEMIA [None]
  - OVERDOSE [None]
